FAERS Safety Report 21184292 (Version 1)
Quarter: 2022Q3

REPORT INFORMATION
  Report Type: Spontaneous
  Country: DE (occurrence: DE)
  Receive Date: 20220808
  Receipt Date: 20220808
  Transmission Date: 20221027
  Serious: Yes (Hospitalization, Other)
  Sender: FDA-Public Use
  Company Number: DE-SAMSUNG BIOEPIS-SB-2022-18340

PATIENT
  Age: 36 Year
  Sex: Female
  Weight: 85 kg

DRUGS (8)
  1. ENTYVIO [Suspect]
     Active Substance: VEDOLIZUMAB
     Indication: Colitis ulcerative
     Dosage: 90 MILLIGRAM
     Route: 065
     Dates: start: 20210625
  2. PREDNISOLONE [Suspect]
     Active Substance: PREDNISOLONE
     Indication: Infection prophylaxis
     Dosage: 12.5 MILLIGRAM, QD
     Route: 065
     Dates: start: 20220318
  3. STELARA [Suspect]
     Active Substance: USTEKINUMAB
     Indication: Colitis ulcerative
     Dosage: 390 MILLIGRAM, Q6WEEKS
     Route: 065
     Dates: start: 20220217
  4. CYCLOSPORINE [Suspect]
     Active Substance: CYCLOSPORINE
     Indication: Colitis ulcerative
     Dosage: 200 MILLIGRAM, Q12H
     Route: 065
  5. CYCLOSPORINE [Suspect]
     Active Substance: CYCLOSPORINE
     Dosage: UNK
     Route: 065
  6. REMICADE [Suspect]
     Active Substance: INFLIXIMAB
     Indication: Product used for unknown indication
     Dosage: UNK
     Route: 065
     Dates: start: 202201, end: 202202
  7. INFLIXIMAB [Suspect]
     Active Substance: INFLIXIMAB
     Indication: Product used for unknown indication
     Dosage: UNK
     Route: 065
     Dates: start: 20220217
  8. AZATHIOPRINE [Suspect]
     Active Substance: AZATHIOPRINE
     Indication: Colitis ulcerative
     Dosage: 100 MILLIGRAM, QD
     Route: 065
     Dates: start: 20220216, end: 20220516

REACTIONS (3)
  - Colitis ulcerative [Recovered/Resolved]
  - Ill-defined disorder [Recovering/Resolving]
  - Infection [Recovering/Resolving]
